FAERS Safety Report 4829439-7 (Version None)
Quarter: 2005Q4

REPORT INFORMATION
  Report Type: 
  Country: None (occurrence: None)
  Receive Date: 20051116
  Receipt Date: 20050901
  Transmission Date: 20060501
  Serious: No
  Sender: FDA-Public Use
  Company Number: US-MERCK-0509USA00329

PATIENT
  Age: 40 Year
  Sex: Female
  Weight: 100 kg

DRUGS (2)
  1. VYTORIN [Suspect]
     Indication: HYPERLIPIDAEMIA
     Route: 048
     Dates: start: 20050101, end: 20050101
  2. IMODIUM A-D [Concomitant]
     Route: 065

REACTIONS (1)
  - MUSCLE SPASMS [None]
